FAERS Safety Report 7963840-8 (Version None)
Quarter: 2011Q4

REPORT INFORMATION
  Report Type: 
  Country: None (occurrence: None)
  Receive Date: 20111208
  Receipt Date: 20111127
  Transmission Date: 20120403
  Serious: Yes (Other)
  Sender: FDA-Public Use
  Company Number: US-BAYER-2011-116117

PATIENT

DRUGS (2)
  1. SUDAFED 12 HOUR [Suspect]
  2. ALKA-SELTZER PLUS COLD SPARKLING ORIGINAL [Suspect]
     Route: 048

REACTIONS (2)
  - FEELING ABNORMAL [None]
  - SOMNOLENCE [None]
